FAERS Safety Report 5257965-8 (Version None)
Quarter: 2007Q1

REPORT INFORMATION
  Report Type: 
  Country: None (occurrence: None)
  Receive Date: 20061220
  Receipt Date: 20060929
  Transmission Date: 20070707
  Serious: No
  Sender: FDA-Public Use
  Company Number: 2006RL000346

PATIENT
  Age: 66 Year
  Sex: Female

DRUGS (2)
  1. OMACOR [Suspect]
     Indication: BLOOD TRIGLYCERIDES
     Dosage: 2 GM; BID; PO
     Route: 048
     Dates: start: 20060801
  2. MULTIPLE MEDICATIONS NOS [Concomitant]

REACTIONS (5)
  - DYSPHAGIA [None]
  - ORAL DISCOMFORT [None]
  - ORAL PAIN [None]
  - PHARYNGOLARYNGEAL PAIN [None]
  - THROAT IRRITATION [None]
